FAERS Safety Report 16246895 (Version 1)
Quarter: 2019Q2

REPORT INFORMATION
  Report Type: Spontaneous
  Country: ES (occurrence: ES)
  Receive Date: 20190427
  Receipt Date: 20190427
  Transmission Date: 20190711
  Serious: Yes (Hospitalization)
  Sender: FDA-Public Use
  Company Number: ES-ACCORD-124314

PATIENT
  Age: 65 Year
  Sex: Male

DRUGS (7)
  1. AMITRIPTYLINE [Suspect]
     Active Substance: AMITRIPTYLINE
     Indication: POLYNEUROPATHY
     Dosage: 10 MG EVERY 24 HOURS
     Route: 048
     Dates: start: 20190118, end: 20190129
  2. PREGABALIN. [Suspect]
     Active Substance: PREGABALIN
     Indication: POLYNEUROPATHY
     Dosage: STRENGTH: 75 MG, 75 MG EVERY 24 HOURS
     Route: 048
     Dates: start: 20180911, end: 20190129
  3. CAFFEINE CITRATE/GLYCERYL TRINITRATE/PHENOBARBITAL [Concomitant]
     Dosage: SUBLINGUAL COATED TABLET, 20 TABLET
     Route: 048
     Dates: start: 20181018
  4. ABASAGLAR [Concomitant]
     Active Substance: INSULIN GLARGINE
     Indication: DIABETES MELLITUS
     Dosage: STRENGTH: 100 UNITS / ML SOLUTION FOR INJECTION IN PRE-FILLED PEN 5 PRE-FILLED PENS OF 3 ML, 34-0-0
     Route: 058
     Dates: start: 20180410
  5. HUMALOG [Concomitant]
     Active Substance: INSULIN LISPRO
     Indication: DIABETES MELLITUS
     Dosage: STRENGTH: 100 U / ML SOLUTION FOR INJECTION IN CARTRIDGE, 1
     Route: 058
     Dates: start: 20170213
  6. CLOPIDOGREL [Concomitant]
     Active Substance: CLOPIDOGREL BISULFATE
     Dosage: STRENGTH:75 MG TABLET COATED WITH EFG FILM, 28 TABLET, 75 MG EVERY 24 HOURS (1-0-0)
     Route: 048
     Dates: start: 20181220
  7. OMEPRAZOLE. [Concomitant]
     Active Substance: OMEPRAZOLE
     Dosage: STRENGTH: 20 MG HARD GASTRO-RESISTANT CAPSULES EFG,20 MG EVERY 24 HOURS (1-0-0)
     Route: 048

REACTIONS (2)
  - Drug reaction with eosinophilia and systemic symptoms [Recovered/Resolved]
  - Hepatitis [Recovered/Resolved]

NARRATIVE: CASE EVENT DATE: 20190126
